FAERS Safety Report 7622126-1 (Version None)
Quarter: 2011Q3

REPORT INFORMATION
  Report Type: 
  Country: None (occurrence: None)
  Receive Date: 20110720
  Receipt Date: 20110407
  Transmission Date: 20111222
  Serious: Yes (Hospitalization, Other)
  Sender: FDA-Public Use
  Company Number: US-BAYER-2011-037582

PATIENT
  Age: 20 Year
  Sex: Female
  Weight: 61.224 kg

DRUGS (8)
  1. YASMIN [Suspect]
     Indication: CONTRACEPTION
     Dosage: UNK UNK, QD
     Dates: start: 20070101, end: 20090101
  2. XANAX [Concomitant]
     Dosage: 1 MG, PRN
  3. NUVARING [Concomitant]
  4. YAZ [Suspect]
     Indication: CONTRACEPTION
     Dosage: UNK UNK, QD
     Dates: start: 20080101, end: 20090101
  5. DROSPIRENONE AND ETHINYL ESTRADIOL [Suspect]
     Indication: CONTRACEPTION
     Dosage: UNK UNK, QD
     Dates: start: 20070101, end: 20090101
  6. DROSPIRENONE AND ETHINYL ESTRADIOL [Suspect]
     Dosage: UNK UNK, QD
     Dates: start: 20080101, end: 20090101
  7. ADDERALL 10 [Concomitant]
     Dosage: 20 MG, BID
  8. KLONOPIN [Concomitant]
     Dosage: 1 MG, UNK

REACTIONS (5)
  - CHEST PAIN [None]
  - GALLBLADDER DISORDER [None]
  - CHOLECYSTITIS CHRONIC [None]
  - PAIN [None]
  - BILIARY DYSKINESIA [None]
